FAERS Safety Report 8792139 (Version 2)
Quarter: 2015Q2

REPORT INFORMATION
  Report Type: Report from Study
  Country: US (occurrence: US)
  Receive Date: 20120918
  Receipt Date: 20150401
  Transmission Date: 20150821
  Serious: Yes (Death)
  Sender: FDA-Public Use
  Company Number: US-ROCHE-1127830

PATIENT
  Age: 65 Year
  Sex: Female

DRUGS (13)
  1. AVASTIN [Suspect]
     Active Substance: BEVACIZUMAB
     Route: 042
  2. LIDOCAINE. [Concomitant]
     Active Substance: LIDOCAINE
     Route: 061
  3. MAGNESIUM CITRATE. [Concomitant]
     Active Substance: MAGNESIUM CITRATE
  4. DOXIL [Concomitant]
     Active Substance: DOXORUBICIN HYDROCHLORIDE
  5. AVASTIN [Suspect]
     Active Substance: BEVACIZUMAB
     Indication: UTERINE CANCER
     Route: 042
     Dates: start: 20070511
  6. LETROZOLE. [Concomitant]
     Active Substance: LETROZOLE
     Route: 065
     Dates: start: 20070727
  7. ZOFRAN [Concomitant]
     Active Substance: ONDANSETRON HYDROCHLORIDE
     Route: 065
  8. CYTOXAN [Concomitant]
     Active Substance: CYCLOPHOSPHAMIDE
     Route: 048
  9. OXYCODONE [Concomitant]
     Active Substance: OXYCODONE
  10. XYLOXYLIN (UNK INGREDIENTS) [Concomitant]
  11. VICODIN [Concomitant]
     Active Substance: ACETAMINOPHEN\HYDROCODONE BITARTRATE
     Route: 048
  12. PERI-COLACE (UNITED STATES) [Concomitant]
  13. CARAFATE [Concomitant]
     Active Substance: SUCRALFATE
     Route: 065

REACTIONS (17)
  - Small intestinal obstruction [Unknown]
  - Constipation [Unknown]
  - Motor dysfunction [Recovered/Resolved]
  - Mucosal inflammation [Unknown]
  - Abdominal discomfort [Unknown]
  - Feeding disorder [Unknown]
  - Hypoaesthesia [Unknown]
  - Disease progression [Unknown]
  - Musculoskeletal discomfort [Unknown]
  - Musculoskeletal pain [Unknown]
  - Off label use [Unknown]
  - Death [Fatal]
  - Pain in extremity [Unknown]
  - Pain in jaw [Unknown]
  - Burning sensation [Unknown]
  - Jaw disorder [Unknown]
  - Nausea [Unknown]

NARRATIVE: CASE EVENT DATE: 20070516
